FAERS Safety Report 18647959 (Version 1)
Quarter: 2020Q4

REPORT INFORMATION
  Report Type: Spontaneous
  Country: OM (occurrence: OM)
  Receive Date: 20201221
  Receipt Date: 20201221
  Transmission Date: 20210114
  Serious: Yes (Life-Threatening, Hospitalization)
  Sender: FDA-Public Use
  Company Number: None

PATIENT
  Age: 41 Year
  Sex: Female
  Weight: 76 kg

DRUGS (1)
  1. INJECTAFER [Suspect]
     Active Substance: FERRIC CARBOXYMALTOSE
     Indication: IRON DEFICIENCY ANAEMIA
     Dates: start: 20200812, end: 20200812

REACTIONS (21)
  - Eye movement disorder [None]
  - Fatigue [None]
  - Pruritus [None]
  - Feeling hot [None]
  - Dizziness [None]
  - Abdominal pain [None]
  - Hot flush [None]
  - Impaired work ability [None]
  - Dry mouth [None]
  - Insomnia [None]
  - Headache [None]
  - Vision blurred [None]
  - Palpitations [None]
  - Pain [None]
  - Bone pain [None]
  - Chills [None]
  - Swelling of eyelid [None]
  - Loss of consciousness [None]
  - Back pain [None]
  - Sneezing [None]
  - Lacrimation increased [None]

NARRATIVE: CASE EVENT DATE: 20200812
